FAERS Safety Report 23480156 (Version 1)
Quarter: 2024Q1

REPORT INFORMATION
  Report Type: Spontaneous
  Country: US (occurrence: US)
  Receive Date: 20240205
  Receipt Date: 20240205
  Transmission Date: 20240409
  Serious: Yes (Hospitalization)
  Sender: FDA-Public Use
  Company Number: US-LUPIN PHARMACEUTICALS INC.-2024-00647

PATIENT

DRUGS (15)
  1. FLUCONAZOLE [Interacting]
     Active Substance: FLUCONAZOLE
     Indication: Opportunistic infection prophylaxis
     Dosage: 200 MG, QD (ON HOSPITAL DAY 4 TO 7)
     Route: 065
  2. FLUCONAZOLE [Interacting]
     Active Substance: FLUCONAZOLE
     Dosage: 400 MG, QD (FROM HOSPITAL DAY 8 TO 9)
     Route: 065
  3. DEXAMETHASONE [Suspect]
     Active Substance: DEXAMETHASONE
     Indication: Thrombocytopenia
     Dosage: UNK
     Route: 065
  4. IMMUNE GLOBULIN NOS [Suspect]
     Active Substance: IMMUNE GLOBULIN NOS
     Indication: Thrombocytopenia
     Dosage: UNK
     Route: 065
  5. AVATROMBOPAG [Interacting]
     Active Substance: AVATROMBOPAG
     Indication: Thrombocytopenia
     Dosage: 20 MG, QD (ON HOSIPTAL DAY 4 TO 9)
     Route: 065
  6. AVATROMBOPAG [Interacting]
     Active Substance: AVATROMBOPAG
     Dosage: 20 MG, QD (ON HOSPITAL DAY 12 TO 14)
  7. AVATROMBOPAG [Interacting]
     Active Substance: AVATROMBOPAG
     Dosage: 40 MG, QD (ON HOSPITAL DAY 15 TO 18)
     Route: 065
  8. CIPROFLOXACIN [Interacting]
     Active Substance: CIPROFLOXACIN
     Indication: Opportunistic infection prophylaxis
     Dosage: 500 MG, QD (ON HOSPITAL DAY 4,5 AND 6)
     Route: 065
  9. CIPROFLOXACIN [Interacting]
     Active Substance: CIPROFLOXACIN
     Dosage: 750 MG, QD (ON HOSPITAL DAY 7)
     Route: 065
  10. CIPROFLOXACIN [Interacting]
     Active Substance: CIPROFLOXACIN
     Dosage: 1000 MG, QD (ON HOSPITAL DAY 8)
     Route: 065
  11. CIPROFLOXACIN [Interacting]
     Active Substance: CIPROFLOXACIN
     Dosage: 500 MG, QD (ON HOSPITAL DAY 9)
     Route: 065
  12. THIAMINE [Suspect]
     Active Substance: THIAMINE
     Indication: Lactic acidosis
     Dosage: UNK
     Route: 048
  13. THIAMINE [Suspect]
     Active Substance: THIAMINE
     Dosage: UNK
     Route: 042
  14. CEFEPIME [Concomitant]
     Active Substance: CEFEPIME HYDROCHLORIDE
     Indication: Product used for unknown indication
     Dosage: UNK
     Route: 065
  15. RITUXIMAB [Concomitant]
     Active Substance: RITUXIMAB
     Indication: Product used for unknown indication
     Dosage: UNK
     Route: 065

REACTIONS (2)
  - Drug interaction [Unknown]
  - Off label use [Unknown]
